FAERS Safety Report 11684083 (Version 3)
Quarter: 2015Q4

REPORT INFORMATION
  Report Type: Spontaneous
  Country: DE (occurrence: DE)
  Receive Date: 20151029
  Receipt Date: 20151211
  Transmission Date: 20160304
  Serious: Yes (Hospitalization, Other)
  Sender: FDA-Public Use
  Company Number: DE-BAYER-2015-450920

PATIENT
  Age: 73 Year
  Sex: Female
  Weight: 53 kg

DRUGS (2)
  1. STIVARGA [Suspect]
     Active Substance: REGORAFENIB
     Indication: GASTROINTESTINAL STROMAL CANCER
     Dosage: 160 MG, QD
     Route: 048
     Dates: start: 20150919, end: 20151004
  2. STIVARGA [Suspect]
     Active Substance: REGORAFENIB
     Indication: METASTASES TO LIVER

REACTIONS (5)
  - Transient ischaemic attack [None]
  - Cerebral infarction [None]
  - Monoparesis [None]
  - Transient ischaemic attack [Recovered/Resolved]
  - Facial paresis [None]

NARRATIVE: CASE EVENT DATE: 20150919
